FAERS Safety Report 12419166 (Version 1)
Quarter: 2016Q2

REPORT INFORMATION
  Report Type: Spontaneous
  Country: US (occurrence: None)
  Receive Date: 20160527
  Receipt Date: 20160527
  Transmission Date: 20160815
  Serious: No
  Sender: FDA-Public Use
  Company Number: None

PATIENT
  Sex: Male

DRUGS (1)
  1. HUMIRA [Suspect]
     Active Substance: ADALIMUMAB
     Indication: RHEUMATOID ARTHRITIS
     Dosage: 1 PEN EVERY 2 WEEKS SUBCUTANEOUSLY
     Route: 058
     Dates: start: 20160505

REACTIONS (2)
  - Rash [None]
  - Drug hypersensitivity [None]
